FAERS Safety Report 25014584 (Version 1)
Quarter: 2025Q1

REPORT INFORMATION
  Report Type: Spontaneous
  Country: CH (occurrence: CH)
  Receive Date: 20250226
  Receipt Date: 20250226
  Transmission Date: 20250408
  Serious: Yes (Life-Threatening, Other)
  Sender: BRACCO
  Company Number: CH-BRACCO-2025CH01068

PATIENT
  Age: 60 Year
  Sex: Female

DRUGS (1)
  1. IOMERON [Suspect]
     Active Substance: IOMEPROL
     Indication: Computerised tomogram
     Route: 042
     Dates: start: 20250217, end: 20250217

REACTIONS (5)
  - Anaphylactic reaction [Recovered/Resolved]
  - Extravasation [Recovered/Resolved]
  - Urticaria [Recovered/Resolved]
  - Laryngeal oedema [Recovered/Resolved]
  - Dyspnoea [Recovered/Resolved]

NARRATIVE: CASE EVENT DATE: 20250217
